FAERS Safety Report 8392264-7 (Version None)
Quarter: 2012Q2

REPORT INFORMATION
  Report Type: 
  Country: None (occurrence: None)
  Receive Date: 20120529
  Receipt Date: 20120518
  Transmission Date: 20120825
  Serious: Yes (Death, Other)
  Sender: FDA-Public Use
  Company Number: US-JNJFOC-20120516105

PATIENT
  Sex: Female

DRUGS (2)
  1. REMICADE [Suspect]
     Indication: CROHN'S DISEASE
     Route: 042
     Dates: start: 20020101
  2. REMICADE [Suspect]
     Dosage: DOSES EVERY 6-8 MONTHS WHEN IN REMISSION
     Route: 042
     Dates: end: 20090101

REACTIONS (2)
  - CROHN'S DISEASE [None]
  - BREAST CANCER STAGE IV [None]
